FAERS Safety Report 7201955-2 (Version None)
Quarter: 2010Q4

REPORT INFORMATION
  Report Type: 
  Country: None (occurrence: None)
  Receive Date: 20101216
  Receipt Date: 20101213
  Transmission Date: 20110411
  Serious: Yes (Life-Threatening, Hospitalization)
  Sender: FDA-Public Use
  Company Number: 2010SP061885

PATIENT
  Age: 67 Year
  Sex: Female

DRUGS (10)
  1. TEMOZOLOMIDE [Suspect]
     Indication: OVARIAN CANCER
     Dates: start: 20101012, end: 20101016
  2. PEGYLATED LIPOSOMAL DOXORUBICIN HCL [Suspect]
     Indication: OVARIAN CANCER
     Dosage: 90 MG; IV, 72 MG; IV
     Route: 042
     Dates: start: 20100803, end: 20100803
  3. PEGYLATED LIPOSOMAL DOXORUBICIN HCL [Suspect]
     Indication: OVARIAN CANCER
     Dosage: 90 MG; IV, 72 MG; IV
     Route: 042
     Dates: start: 20100831, end: 20100831
  4. ABT-888 [Suspect]
     Indication: OVARIAN CANCER
     Dosage: 40 MG; PO
     Route: 048
     Dates: start: 20101012, end: 20101018
  5. LEVOTHYROXINE SODIUM [Concomitant]
  6. CANDESARTAN CILEXETIL [Concomitant]
  7. PYRIDOXINE HYDROCHLORIDE [Concomitant]
  8. DOCUSATE [Concomitant]
  9. CARBOPLATIN [Concomitant]
  10. TAXOL [Concomitant]

REACTIONS (5)
  - BACTERAEMIA [None]
  - ENTEROCOCCUS TEST POSITIVE [None]
  - FEBRILE NEUTROPENIA [None]
  - PLATELET COUNT DECREASED [None]
  - RECTAL HAEMORRHAGE [None]
